FAERS Safety Report 5654209-X (Version None)
Quarter: 2008Q1

REPORT INFORMATION
  Report Type: 
  Country: None (occurrence: None)
  Receive Date: 20080206
  Receipt Date: 20070618
  Transmission Date: 20080703
  Serious: Yes (Hospitalization, Disabling)
  Sender: FDA-Public Use
  Company Number: US200706000283

PATIENT
  Sex: Female

DRUGS (3)
  1. EVISTA [Suspect]
     Dosage: ORAL
     Route: 048
  2. LIPITOR [Concomitant]
  3. SYNTHROID [Concomitant]

REACTIONS (1)
  - DEEP VEIN THROMBOSIS [None]
